FAERS Safety Report 18682809 (Version 1)
Quarter: 2020Q4

REPORT INFORMATION
  Report Type: Spontaneous
  Country: US (occurrence: US)
  Receive Date: 20201230
  Receipt Date: 20201230
  Transmission Date: 20210114
  Serious: Yes (Death, Life-Threatening, Other)
  Sender: FDA-Public Use
  Company Number: US-AMGEN-USASP2020210663

PATIENT

DRUGS (2)
  1. CYCLOPHOSPHAMIDE. [Concomitant]
     Active Substance: CYCLOPHOSPHAMIDE
     Dosage: 2 GRAM PER SQUARE METRE
     Route: 042
  2. FILGRASTIM [Suspect]
     Active Substance: FILGRASTIM
     Indication: PRODUCT USED FOR UNKNOWN INDICATION
     Dosage: 5 TO 10 MICROGRAM
     Route: 065

REACTIONS (30)
  - Febrile neutropenia [Unknown]
  - Complication associated with device [Unknown]
  - Hypokalaemia [Unknown]
  - Escherichia infection [Unknown]
  - Hypophosphataemia [Unknown]
  - Transaminases increased [Unknown]
  - Vomiting [Unknown]
  - Therapeutic product effect incomplete [Unknown]
  - Upper respiratory tract infection [Unknown]
  - Acinetobacter infection [Unknown]
  - Rhinovirus infection [Unknown]
  - Drug ineffective [Unknown]
  - Hypertension [Unknown]
  - Respiratory disorder [Unknown]
  - Dyspnoea [Unknown]
  - Decreased appetite [Unknown]
  - Urinary tract infection [Unknown]
  - Diarrhoea [Unknown]
  - Presyncope [Unknown]
  - Hypotension [Unknown]
  - Epistaxis [Unknown]
  - Sinusitis [Unknown]
  - Pharyngitis [Unknown]
  - Hyponatraemia [Unknown]
  - Abdominal pain [Unknown]
  - Respiratory arrest [Fatal]
  - Hyperglycaemia [Unknown]
  - Hypothyroidism [Unknown]
  - Conjunctivitis [Unknown]
  - Condition aggravated [Unknown]
